FAERS Safety Report 23369479 (Version 1)
Quarter: 2024Q1

REPORT INFORMATION
  Report Type: Spontaneous
  Country: US (occurrence: None)
  Receive Date: 20240104
  Receipt Date: 20240104
  Transmission Date: 20240410
  Serious: Yes (Death)
  Sender: FDA-Public Use
  Company Number: None

PATIENT
  Age: 25 Year
  Sex: Male
  Weight: 78.75 kg

DRUGS (1)
  1. HERBALS\MITRAGYNINE [Suspect]
     Active Substance: HERBALS\MITRAGYNINE
     Indication: Product used for unknown indication
     Route: 048
     Dates: end: 20230724

REACTIONS (4)
  - Seizure [None]
  - Loss of consciousness [None]
  - Fall [None]
  - Toxicity to various agents [None]

NARRATIVE: CASE EVENT DATE: 20230724
